FAERS Safety Report 22027169 (Version 2)
Quarter: 2023Q1

REPORT INFORMATION
  Report Type: Report from Study
  Country: BR (occurrence: BR)
  Receive Date: 20230223
  Receipt Date: 20230314
  Transmission Date: 20230417
  Serious: Yes (Hospitalization)
  Sender: FDA-Public Use
  Company Number: BR-ELI_LILLY_AND_COMPANY-BR202106004362

PATIENT
  Age: 69 Year
  Sex: Female

DRUGS (4)
  1. FORTEO [Suspect]
     Active Substance: TERIPARATIDE
     Indication: Osteoporosis
     Dosage: 20 UG, UNKNOWN
     Route: 058
     Dates: start: 20201225
  2. FORTEO [Suspect]
     Active Substance: TERIPARATIDE
     Indication: Fractured sacrum
     Dosage: UNK UNK, UNKNOWN
     Route: 065
  3. FORTEO [Suspect]
     Active Substance: TERIPARATIDE
     Dosage: 20 UG, DAILY
     Route: 058
  4. FORTEO [Suspect]
     Active Substance: TERIPARATIDE
     Dosage: 20 MG
     Route: 058
     Dates: end: 202301

REACTIONS (20)
  - Varicose ulceration [Unknown]
  - Post procedural complication [Unknown]
  - Intervertebral disc protrusion [Not Recovered/Not Resolved]
  - Pulmonary oedema [Unknown]
  - Venous occlusion [Unknown]
  - Peripheral vascular disorder [Unknown]
  - Bone pain [Unknown]
  - Wound haemorrhage [Unknown]
  - Haemorrhoids [Unknown]
  - Limb injury [Recovered/Resolved]
  - Arthralgia [Unknown]
  - Pneumonia [Unknown]
  - Pain [Unknown]
  - Musculoskeletal stiffness [Recovered/Resolved]
  - Hand deformity [Unknown]
  - Sciatica [Unknown]
  - Hernia [Unknown]
  - Malaise [Unknown]
  - Pain in extremity [Unknown]
  - Muscle contractions involuntary [Unknown]

NARRATIVE: CASE EVENT DATE: 20201225
